FAERS Safety Report 8544925-4 (Version None)
Quarter: 2012Q3

REPORT INFORMATION
  Report Type: 
  Country: None (occurrence: None)
  Receive Date: 20120727
  Receipt Date: 20120719
  Transmission Date: 20120928
  Serious: Yes (Hospitalization)
  Sender: FDA-Public Use
  Company Number: US-009507513-1207USA008665

PATIENT

DRUGS (1)
  1. ISENTRESS [Suspect]
     Dosage: 400 MG, BID
     Route: 048

REACTIONS (1)
  - CONVULSION [None]
